FAERS Safety Report 5195845-7 (Version None)
Quarter: 2006Q4

REPORT INFORMATION
  Report Type: 
  Country: None (occurrence: None)
  Receive Date: 20061227
  Receipt Date: 20061214
  Transmission Date: 20070319
  Serious: No
  Sender: FDA-Public Use
  Company Number: 06H-163-0311543-00

PATIENT
  Sex: 0

DRUGS (1)
  1. LACTATED RINGER'S [Suspect]
     Dosage: TRANSPLACENTAL
     Route: 064
     Dates: start: 20060101, end: 20060101

REACTIONS (4)
  - BRADYCARDIA FOETAL [None]
  - CAESAREAN SECTION [None]
  - DRUG EXPOSURE DURING PREGNANCY [None]
  - UMBILICAL CORD SHORT [None]
